FAERS Safety Report 9040463 (Version 1)
Quarter: 2013Q1

REPORT INFORMATION
  Report Type: Report from Study
  Country: US (occurrence: US)
  Receive Date: 20130129
  Receipt Date: 20130129
  Transmission Date: 20140127
  Serious: No
  Sender: FDA-Public Use
  Company Number: US-ABBOTT-12P-163-0891440-00

PATIENT
  Sex: Male

DRUGS (1)
  1. HUMIRA 40 MG/0.8 ML PEN [Suspect]
     Indication: CROHN^S DISEASE
     Dosage: AS DIRECTED BY PHYSICIAN
     Route: 058
     Dates: start: 20111223

REACTIONS (5)
  - Tremor [Unknown]
  - Vision blurred [Unknown]
  - Asthenia [Unknown]
  - Throat irritation [Unknown]
  - Back pain [Unknown]
